FAERS Safety Report 10739867 (Version 1)
Quarter: 2015Q1

REPORT INFORMATION
  Report Type: Spontaneous
  Country: US (occurrence: US)
  Receive Date: 20150127
  Receipt Date: 20150127
  Transmission Date: 20150721
  Serious: Yes (Other)
  Sender: FDA-Public Use
  Company Number: US-BRISTOL-MYERS SQUIBB COMPANY-BMS-2015-002686

PATIENT
  Sex: Female
  Weight: 67.1 kg

DRUGS (5)
  1. LETAIRIS [Concomitant]
     Active Substance: AMBRISENTAN
  2. TYVASO [Suspect]
     Active Substance: TREPROSTINIL
     Indication: PULMONARY ARTERIAL HYPERTENSION
     Dosage: 1 DF, UNK
     Route: 065
     Dates: start: 20120727
  3. COUMADIN [Suspect]
     Active Substance: WARFARIN SODIUM
     Indication: PRODUCT USED FOR UNKNOWN INDICATION
     Route: 065
  4. CIALIS [Concomitant]
     Active Substance: TADALAFIL
  5. ADCIRCA [Concomitant]
     Active Substance: TADALAFIL

REACTIONS (3)
  - Menorrhagia [Recovered/Resolved]
  - Bronchitis [Unknown]
  - International normalised ratio increased [Recovering/Resolving]

NARRATIVE: CASE EVENT DATE: 2014
